FAERS Safety Report 8579117-6 (Version None)
Quarter: 2012Q3

REPORT INFORMATION
  Report Type: 
  Country: None (occurrence: None)
  Receive Date: 20120808
  Receipt Date: 20120731
  Transmission Date: 20120928
  Serious: Yes (Hospitalization)
  Sender: FDA-Public Use
  Company Number: JP-VERTEX PHARMACEUTICALS INC.-AE-2012-009364

PATIENT
  Age: 51 Year
  Sex: Male

DRUGS (12)
  1. CLOBETASOL PROPIONATE [Concomitant]
     Route: 061
     Dates: start: 20120508, end: 20120517
  2. LENDORMIN [Concomitant]
     Route: 048
     Dates: start: 20120509
  3. ALLEGRA [Concomitant]
     Route: 048
     Dates: start: 20120502
  4. RIBAVIRIN [Concomitant]
     Indication: HEPATITIS C
     Route: 048
     Dates: start: 20120426, end: 20120516
  5. RIBAVIRIN [Concomitant]
     Route: 048
     Dates: start: 20120517
  6. RIBAVIRIN [Concomitant]
     Route: 048
     Dates: start: 20120621
  7. LENDORMIN [Concomitant]
     Route: 048
  8. RIBAVIRIN [Concomitant]
     Route: 048
  9. PEGINTERFERON ALFA-2B [Concomitant]
     Indication: HEPATITIS C
     Route: 058
     Dates: start: 20120426
  10. TELAVIC (TELAPREVIR) [Suspect]
     Indication: HEPATITIS C
     Route: 048
     Dates: start: 20120426, end: 20120508
  11. ANTEBATE OINTMENT [Concomitant]
     Route: 061
     Dates: end: 20120507
  12. FAMOTIDINE [Concomitant]
     Dates: start: 20120426

REACTIONS (1)
  - RASH [None]
